FAERS Safety Report 5242736-9 (Version None)
Quarter: 2007Q1

REPORT INFORMATION
  Report Type: 
  Country: None (occurrence: None)
  Receive Date: 20070221
  Receipt Date: 20070219
  Transmission Date: 20070707
  Serious: Yes (Other)
  Sender: FDA-Public Use
  Company Number: DE-GLAXOSMITHKLINE-D0051991A

PATIENT
  Age: 40 Year
  Sex: Male
  Weight: 80 kg

DRUGS (1)
  1. AUGMENTIN '125' [Suspect]
     Indication: LUDWIG ANGINA
     Route: 048
     Dates: start: 20061213, end: 20061219

REACTIONS (3)
  - COLITIS [None]
  - DIARRHOEA [None]
  - DRUG ERUPTION [None]
